FAERS Safety Report 6204188-1 (Version None)
Quarter: 2009Q2

REPORT INFORMATION
  Report Type: 
  Country: None (occurrence: None)
  Receive Date: 20090526
  Receipt Date: 20090526
  Transmission Date: 20091009
  Serious: Yes (Hospitalization, Other)
  Sender: FDA-Public Use
  Company Number: None

PATIENT
  Sex: Male
  Weight: 49 kg

DRUGS (1)
  1. MERCAPTOPURINE [Suspect]
     Indication: CROHN'S DISEASE
     Dates: start: 20081119, end: 20090406

REACTIONS (6)
  - CONDITION AGGRAVATED [None]
  - CROHN'S DISEASE [None]
  - NAUSEA [None]
  - PANCREATITIS [None]
  - PYREXIA [None]
  - VOMITING [None]
